FAERS Safety Report 24585653 (Version 1)
Quarter: 2024Q4

REPORT INFORMATION
  Report Type: Spontaneous
  Country: US (occurrence: US)
  Receive Date: 20241106
  Receipt Date: 20241106
  Transmission Date: 20250114
  Serious: Yes (Hospitalization)
  Sender: AMGEN
  Company Number: US-AMGEN-USASP2024217135

PATIENT
  Age: 71 Year

DRUGS (2)
  1. RIABNI [Suspect]
     Active Substance: RITUXIMAB-ARRX
     Indication: Product used for unknown indication
     Dosage: TOTAL DOSE: 806MG (100MG VIALS X3)
     Route: 065
  2. RIABNI [Suspect]
     Active Substance: RITUXIMAB-ARRX
     Dosage: TOTAL DOSE: 806MG (500MG VIAL X1)
     Route: 065

REACTIONS (1)
  - Hypoxia [Unknown]
